FAERS Safety Report 6191043-9 (Version None)
Quarter: 2009Q2

REPORT INFORMATION
  Report Type: 
  Country: None (occurrence: None)
  Receive Date: 20090513
  Receipt Date: 20090427
  Transmission Date: 20091009
  Serious: Yes (Death, Life-Threatening, Hospitalization, Other)
  Sender: FDA-Public Use
  Company Number: ADE# 09-169DPR

PATIENT
  Age: 88 Year
  Sex: Male

DRUGS (7)
  1. DIGOXIN [Suspect]
     Indication: HEART RATE IRREGULAR
     Dosage: 0.125MG
     Dates: start: 20081201, end: 20090301
  2. ARICEPT [Concomitant]
  3. SODIUM BICARBONATE IN PLASTIC CONTAINER [Concomitant]
  4. UNSPECIFIED VITAMINS [Concomitant]
  5. CALCIUM [Concomitant]
  6. ATENOLOL [Concomitant]
  7. SEVERAL OTHER UNSPECIFIED HEART AND BLOOD PRESSURE MEDICATIONS [Concomitant]

REACTIONS (21)
  - ADJUSTMENT DISORDER [None]
  - ASTHENIA [None]
  - CARDIOACTIVE DRUG LEVEL INCREASED [None]
  - CONFUSIONAL STATE [None]
  - DECREASED ACTIVITY [None]
  - DECREASED APPETITE [None]
  - DEPRESSION [None]
  - DIARRHOEA [None]
  - DISCOMFORT [None]
  - DISORIENTATION [None]
  - DYSSTASIA [None]
  - HEART RATE DECREASED [None]
  - HYPOPHAGIA [None]
  - INCONTINENCE [None]
  - LETHARGY [None]
  - MENTAL DISORDER [None]
  - NAUSEA [None]
  - PAIN [None]
  - PNEUMONIA [None]
  - SOMNOLENCE [None]
  - WEIGHT DECREASED [None]
